FAERS Safety Report 6511456-2 (Version None)
Quarter: 2009Q4

REPORT INFORMATION
  Report Type: 
  Country: None (occurrence: None)
  Receive Date: 20091222
  Receipt Date: 20091218
  Transmission Date: 20100525
  Serious: Yes (Death)
  Sender: FDA-Public Use
  Company Number: US-GILEAD-2009-0026025

PATIENT
  Sex: Male

DRUGS (11)
  1. LETAIRIS [Suspect]
     Indication: PULMONARY ARTERIAL HYPERTENSION
     Route: 048
     Dates: start: 20091110
  2. METOPROLOL SUCCINATE EXTENDED RELEASE [Concomitant]
  3. ALLOPURINOL [Concomitant]
  4. XOPENEX [Concomitant]
  5. WARFARIN SODIUM [Concomitant]
  6. NIASPAN [Concomitant]
  7. LIPITOR [Concomitant]
  8. ZOLPIDEM [Concomitant]
  9. BENZONATATE [Concomitant]
  10. BUMETANIDE [Concomitant]
  11. KLOR-CON [Concomitant]

REACTIONS (2)
  - CARDIOMYOPATHY [None]
  - RESPIRATORY FAILURE [None]
